FAERS Safety Report 6895487-9 (Version None)
Quarter: 2010Q3

REPORT INFORMATION
  Report Type: 
  Country: None (occurrence: None)
  Receive Date: 20100802
  Receipt Date: 20100723
  Transmission Date: 20110219
  Serious: Yes (Death, Other)
  Sender: FDA-Public Use
  Company Number: PHHY2010DE49767

PATIENT
  Age: 47 Year
  Sex: Female

DRUGS (3)
  1. IMATINIB [Suspect]
     Indication: CHRONIC MYELOID LEUKAEMIA
     Dosage: 400 MG DAILY
     Route: 048
  2. IMATINIB [Suspect]
     Dosage: 300 MG DAILY
     Route: 048
  3. ARA-C [Concomitant]
     Dosage: 40 MG EVERY 5 DAYS

REACTIONS (6)
  - DEATH [None]
  - DRUG RESISTANCE [None]
  - GENE MUTATION IDENTIFICATION TEST POSITIVE [None]
  - LEUKOPENIA [None]
  - THERAPEUTIC RESPONSE DECREASED [None]
  - THROMBOCYTOPENIA [None]
